FAERS Safety Report 9667458 (Version 1)
Quarter: 2013Q4

REPORT INFORMATION
  Report Type: Spontaneous
  Country: US (occurrence: US)
  Receive Date: 20131101
  Receipt Date: 20131101
  Transmission Date: 20140711
  Serious: Yes (Other)
  Sender: FDA-Public Use
  Company Number: US-SAVIENT-2012S1000063

PATIENT
  Age: 55 Year
  Sex: Male
  Weight: 76.2 kg

DRUGS (4)
  1. KRYSTEXXA INJECTION [Suspect]
     Indication: GOUT
     Route: 042
     Dates: start: 20120514, end: 20120627
  2. TYLENOL /00020001/ [Concomitant]
     Indication: PREMEDICATION
     Dates: start: 20120514, end: 20120627
  3. SOLU-CORTEF [Concomitant]
     Indication: PREMEDICATION
     Dates: start: 20120514, end: 20120627
  4. BENADRYL /00000402/ [Concomitant]
     Indication: PREMEDICATION
     Dates: start: 20120514, end: 20120627

REACTIONS (2)
  - Infusion related reaction [Recovered/Resolved]
  - Therapeutic response decreased [Unknown]
